FAERS Safety Report 5508133-3 (Version None)
Quarter: 2007Q4

REPORT INFORMATION
  Report Type: 
  Country: None (occurrence: None)
  Receive Date: 20071106
  Receipt Date: 20071025
  Transmission Date: 20080405
  Serious: Yes (Hospitalization)
  Sender: FDA-Public Use
  Company Number: US-ELI_LILLY_AND_COMPANY-US200710006392

PATIENT
  Age: 31 Year
  Sex: Male

DRUGS (4)
  1. CYMBALTA [Suspect]
     Indication: PAIN IN EXTREMITY
     Dosage: 40 MG, UNK
     Route: 048
  2. EFFEXOR [Concomitant]
     Dosage: 150 MG, UNK
  3. SEROQUEL [Concomitant]
     Dosage: 500 MG, UNK
  4. RESTORIL [Concomitant]
     Dosage: 15 MG, 3/D

REACTIONS (4)
  - AGITATION [None]
  - MUSCLE TWITCHING [None]
  - PNEUMONIA [None]
  - RENAL FAILURE [None]
